FAERS Safety Report 5863320-X (Version None)
Quarter: 2008Q3

REPORT INFORMATION
  Report Type: 
  Country: None (occurrence: None)
  Receive Date: 20080828
  Receipt Date: 20080819
  Transmission Date: 20090109
  Serious: Yes (Hospitalization)
  Sender: FDA-Public Use
  Company Number: PHHY2008MX07526

PATIENT
  Sex: Female

DRUGS (3)
  1. DIOVAN HCT [Suspect]
     Indication: HYPERTENSION
     Dosage: 0.5 TABLET(160/12.5MG)/D
     Route: 048
     Dates: start: 20041101, end: 20080805
  2. GALVUS [Suspect]
     Indication: DIABETES MELLITUS
     Dosage: 2 TABLETS PER DAY
     Route: 048
     Dates: start: 20080201, end: 20080805
  3. AMARYL [Concomitant]
     Dosage: UNK
     Dates: end: 20080301

REACTIONS (5)
  - BRADYCARDIA [None]
  - CARDIAC PACEMAKER INSERTION [None]
  - HYPOGLYCAEMIA [None]
  - HYPOTENSION [None]
  - PERIPHERAL VASCULAR DISORDER [None]
